FAERS Safety Report 14119560 (Version 1)
Quarter: 2017Q4

REPORT INFORMATION
  Report Type: Spontaneous
  Country: US (occurrence: US)
  Receive Date: 20171024
  Receipt Date: 20171024
  Transmission Date: 20180321
  Serious: Yes (Hospitalization, Other)
  Sender: FDA-Public Use
  Company Number: US-CIPLA LTD.-2017US18219

PATIENT

DRUGS (2)
  1. WARFARIN [Suspect]
     Active Substance: WARFARIN
     Indication: ANTICOAGULANT THERAPY
     Dosage: UNK
     Route: 065
  2. ASPIRIN. [Suspect]
     Active Substance: ASPIRIN
     Indication: ANTIPLATELET THERAPY
     Dosage: 3-5 MG/KG, PER DAY (LOW DOSE)
     Route: 065

REACTIONS (5)
  - Menorrhagia [Unknown]
  - Pericardial haemorrhage [Unknown]
  - Epistaxis [Unknown]
  - Coronary artery stenosis [Unknown]
  - Anaemia [Unknown]
